FAERS Safety Report 9174669 (Version 1)
Quarter: 2013Q1

REPORT INFORMATION
  Report Type: Spontaneous
  Country: CA (occurrence: None)
  Receive Date: 20130315
  Receipt Date: 20130315
  Transmission Date: 20140127
  Serious: Yes (Hospitalization)
  Sender: FDA-Public Use
  Company Number: 20130097

PATIENT
  Sex: Female

DRUGS (4)
  1. CALCIUM GLUCONATE [Suspect]
     Route: 042
  2. MAGNESIUM [Concomitant]
  3. VITAMIN C [Concomitant]
  4. B VITAMINS [Concomitant]

REACTIONS (5)
  - Pyrexia [None]
  - Suspected transmission of an infectious agent via product [None]
  - Wrong technique in drug usage process [None]
  - Enterobacter test positive [None]
  - Infection [None]
